FAERS Safety Report 10010128 (Version 1)
Quarter: 2014Q1

REPORT INFORMATION
  Report Type: Spontaneous
  Country: US (occurrence: US)
  Receive Date: 20140312
  Receipt Date: 20140312
  Transmission Date: 20141002
  Serious: No
  Sender: FDA-Public Use
  Company Number: US-INCYTE CORPORATION-2013IN001132

PATIENT
  Age: 64 Year
  Sex: Female

DRUGS (3)
  1. JAKAFI [Suspect]
     Dosage: 20 MG, BID
     Route: 048
  2. ANAGRELIDE [Concomitant]
  3. ARANESP [Concomitant]

REACTIONS (3)
  - Malaise [Unknown]
  - White blood cell count decreased [Unknown]
  - Headache [Unknown]
